FAERS Safety Report 21613217 (Version 1)
Quarter: 2022Q4

REPORT INFORMATION
  Report Type: Report from Study
  Country: US (occurrence: US)
  Receive Date: 20221118
  Receipt Date: 20221118
  Transmission Date: 20230113
  Serious: No
  Sender: FDA-Public Use
  Company Number: US-ABBVIE-22K-163-4448306-00

PATIENT
  Age: 17 Year
  Sex: Female

DRUGS (2)
  1. HUMIRA [Suspect]
     Active Substance: ADALIMUMAB
     Indication: Crohn^s disease
     Dosage: CITRATE FREE?LAST ADMIN DATE:2022
     Route: 058
     Dates: start: 20220504
  2. HUMIRA [Suspect]
     Active Substance: ADALIMUMAB
     Dosage: CITRATE FREE?INCREASED DOSE?FIRST ADMIN DATE:2022
     Route: 058

REACTIONS (8)
  - Infective glossitis [Recovering/Resolving]
  - Nasopharyngitis [Recovered/Resolved]
  - Intentional product misuse [Unknown]
  - Nasopharyngitis [Recovered/Resolved]
  - Ear infection [Recovered/Resolved]
  - Injection site urticaria [Recovered/Resolved]
  - Injection site urticaria [Recovering/Resolving]
  - Cobble stone tongue [Recovering/Resolving]

NARRATIVE: CASE EVENT DATE: 20220609
